FAERS Safety Report 23305246 (Version 1)
Quarter: 2023Q4

REPORT INFORMATION
  Report Type: Other
  Country: None (occurrence: IR)
  Receive Date: 20231218
  Receipt Date: 20231218
  Transmission Date: 20240110
  Serious: Yes (Hospitalization, Other)
  Sender: FDA-Public Use
  Company Number: IR-The ACME Laboratories Ltd-2149446

PATIENT
  Age: 39 Year
  Sex: Female

DRUGS (3)
  1. ZOLPIDEM TARTRATE [Suspect]
     Active Substance: ZOLPIDEM TARTRATE
     Indication: Product used for unknown indication
     Route: 065
  2. VALPROATE SODIUM [Concomitant]
     Active Substance: VALPROATE SODIUM
     Route: 065
  3. ALPRAZOLAM [Concomitant]
     Active Substance: ALPRAZOLAM
     Route: 065

REACTIONS (22)
  - Seizure [Recovering/Resolving]
  - Drug abuse [Unknown]
  - Nystagmus [Recovering/Resolving]
  - Ocular hyperaemia [Recovering/Resolving]
  - Stress [Recovering/Resolving]
  - Hot flush [Recovering/Resolving]
  - Hyperhidrosis [Recovered/Resolved]
  - Psychiatric symptom [Recovering/Resolving]
  - Feelings of worthlessness [Recovering/Resolving]
  - Drug withdrawal syndrome [Recovering/Resolving]
  - Drug withdrawal convulsions [Recovering/Resolving]
  - Tremor [Recovering/Resolving]
  - Anxiety [Recovering/Resolving]
  - Headache [Recovering/Resolving]
  - Balance disorder [Recovering/Resolving]
  - Vision blurred [Recovering/Resolving]
  - Depression [Recovering/Resolving]
  - Irritability [Recovering/Resolving]
  - Anxiety [Recovering/Resolving]
  - Decreased appetite [Recovering/Resolving]
  - Amnesia [Recovering/Resolving]
  - Overdose [Unknown]
